FAERS Safety Report 7782865-9 (Version None)
Quarter: 2011Q3

REPORT INFORMATION
  Report Type: 
  Country: None (occurrence: None)
  Receive Date: 20110928
  Receipt Date: 20110923
  Transmission Date: 20111222
  Serious: Yes (Hospitalization, Other)
  Sender: FDA-Public Use
  Company Number: PHHY2011BR85202

PATIENT
  Sex: Female
  Weight: 50 kg

DRUGS (1)
  1. STALEVO 100 [Suspect]
     Indication: PARKINSON'S DISEASE
     Dosage: 100/25/200MG, ONE TABLET THREE TABLETS
     Route: 048

REACTIONS (3)
  - CEREBROVASCULAR DISORDER [None]
  - PNEUMONIA [None]
  - INTRACRANIAL PRESSURE INCREASED [None]
